FAERS Safety Report 7386458-7 (Version None)
Quarter: 2011Q1

REPORT INFORMATION
  Report Type: 
  Country: None (occurrence: None)
  Receive Date: 20110331
  Receipt Date: 20110318
  Transmission Date: 20110831
  Serious: Yes (Hospitalization)
  Sender: FDA-Public Use
  Company Number: BR-SANOFI-AVENTIS-2011SA016867

PATIENT
  Age: 68 Year
  Sex: Male
  Weight: 94 kg

DRUGS (2)
  1. ALL OTHER THERAPEUTIC PRODUCTS [Concomitant]
  2. LANTUS [Suspect]
     Route: 058

REACTIONS (2)
  - RENAL FAILURE [None]
  - OEDEMA PERIPHERAL [None]
